FAERS Safety Report 4371808-6 (Version None)
Quarter: 2004Q2

REPORT INFORMATION
  Report Type: 
  Country: None (occurrence: None)
  Receive Date: 20040602
  Receipt Date: 20040602
  Transmission Date: 20050107
  Serious: Yes (Death)
  Sender: FDA-Public Use
  Company Number: None

PATIENT
  Age: 85 Year
  Sex: Male
  Weight: 89.8 kg

DRUGS (4)
  1. TRASYLOL [Suspect]
     Indication: CORONARY ARTERY SURGERY
     Dosage: 10,000 KIU TEST DOSE INTRAVENOUS
     Route: 042
     Dates: start: 20040331, end: 20040331
  2. TRASYLOL [Suspect]
     Indication: STERNOTOMY
     Dosage: 10,000 KIU TEST DOSE INTRAVENOUS
     Route: 042
     Dates: start: 20040331, end: 20040331
  3. PROTAMINE 250 IU/ 25 ML [Suspect]
     Indication: CORONARY ARTERY SURGERY
     Dosage: 225 IU ONCE INTRAVENOUS
     Route: 042
     Dates: start: 20040331, end: 20040331
  4. PROTAMINE 250 IU/ 25 ML [Suspect]
     Indication: STERNOTOMY
     Dosage: 225 IU ONCE INTRAVENOUS
     Route: 042
     Dates: start: 20040331, end: 20040331

REACTIONS (6)
  - CARDIO-RESPIRATORY ARREST [None]
  - COAGULATION TIME PROLONGED [None]
  - ELECTROMECHANICAL DISSOCIATION [None]
  - HYPOTENSION [None]
  - VENTRICULAR FIBRILLATION [None]
  - VENTRICULAR TACHYCARDIA [None]
